FAERS Safety Report 15134708 (Version 2)
Quarter: 2019Q1

REPORT INFORMATION
  Report Type: Spontaneous
  Country: US (occurrence: US)
  Receive Date: 20180712
  Receipt Date: 20190206
  Transmission Date: 20190417
  Serious: Yes (Hospitalization, Other)
  Sender: FDA-Public Use
  Company Number: US-JNJFOC-20180711168

PATIENT
  Age: 61 Year
  Sex: Male

DRUGS (2)
  1. GLUCOPHAGE [Suspect]
     Active Substance: METFORMIN HYDROCHLORIDE
     Indication: PRODUCT USED FOR UNKNOWN INDICATION
     Route: 048
     Dates: end: 201611
  2. INVOKANA [Suspect]
     Active Substance: CANAGLIFLOZIN
     Indication: TYPE 2 DIABETES MELLITUS
     Route: 048
     Dates: start: 20150502

REACTIONS (6)
  - Skin necrosis [Unknown]
  - Metabolic acidosis [Recovering/Resolving]
  - Toe amputation [Unknown]
  - Osteomyelitis [Unknown]
  - Acute kidney injury [Recovered/Resolved]
  - Diabetic foot infection [Unknown]

NARRATIVE: CASE EVENT DATE: 20161116
